FAERS Safety Report 25087038 (Version 1)
Quarter: 2025Q1

REPORT INFORMATION
  Report Type: Other
  Country: CA (occurrence: CA)
  Receive Date: 20250318
  Receipt Date: 20250318
  Transmission Date: 20250409
  Serious: Yes (Hospitalization, Other)
  Sender: APOTEX
  Company Number: CA-APOTEX-2025AP001393

PATIENT
  Age: 31 Year
  Sex: Male
  Weight: 81 kg

DRUGS (4)
  1. PREDNISONE [Suspect]
     Active Substance: PREDNISONE
     Indication: Product used for unknown indication
     Dosage: 20 MILLIGRAM, QD
     Route: 065
  2. PREDNISONE [Suspect]
     Active Substance: PREDNISONE
     Route: 065
  3. DOXYCYCLINE [Suspect]
     Active Substance: DOXYCYCLINE
     Indication: Product used for unknown indication
     Route: 065
  4. RENFLEXIS [Suspect]
     Active Substance: INFLIXIMAB-ABDA
     Indication: Crohn^s disease
     Route: 042

REACTIONS (18)
  - Arthralgia [Recovering/Resolving]
  - Haematuria [Recovering/Resolving]
  - Inflammation [Recovering/Resolving]
  - Joint swelling [Recovering/Resolving]
  - Mental disorder [Recovering/Resolving]
  - Off label use [Recovering/Resolving]
  - Pyrexia [Recovering/Resolving]
  - Suicidal ideation [Recovering/Resolving]
  - Cerebral venous sinus thrombosis [Recovering/Resolving]
  - Oedema peripheral [Recovering/Resolving]
  - Pallor [Recovering/Resolving]
  - Disability [Recovering/Resolving]
  - Drug hypersensitivity [Recovering/Resolving]
  - Malaise [Recovering/Resolving]
  - Rash [Recovering/Resolving]
  - Headache [Recovering/Resolving]
  - Depressed mood [Recovering/Resolving]
  - Skin infection [Recovering/Resolving]
